FAERS Safety Report 20924916 (Version 3)
Quarter: 2022Q4

REPORT INFORMATION
  Report Type: Report from Study
  Country: CA (occurrence: CA)
  Receive Date: 20220607
  Receipt Date: 20221006
  Transmission Date: 20230112
  Serious: Yes (Other)
  Sender: FDA-Public Use
  Company Number: CA-JNJFOC-20220532597

PATIENT
  Age: 14 Year
  Sex: Female
  Weight: 57 kg

DRUGS (3)
  1. REMICADE [Suspect]
     Active Substance: INFLIXIMAB
     Indication: Crohn^s disease
     Dosage: ON 16-MAY-2022,RECEIVED HER 57TH INFLIXIMAB RECOMBINANT INFUSION OF 570 MG AND PARTIAL HARVEY - BRAD
     Route: 042
     Dates: start: 20160414
  2. REMICADE [Suspect]
     Active Substance: INFLIXIMAB
     Dosage: ON 08-AUG-2022,RECEIVED HER 60TH INFLIXIMAB RECOMBINANT INFUSION OF 600MG AND PARTIAL HARVEY - BRADS
     Route: 042
     Dates: start: 20201218
  3. REMICADE [Suspect]
     Active Substance: INFLIXIMAB
     Route: 042
     Dates: start: 20210416

REACTIONS (2)
  - Crohn^s disease [Recovered/Resolved]
  - Off label use [Unknown]

NARRATIVE: CASE EVENT DATE: 20160414
